FAERS Safety Report 4353850-4 (Version None)
Quarter: 2004Q2

REPORT INFORMATION
  Report Type: 
  Country: None (occurrence: None)
  Receive Date: 20040506
  Receipt Date: 20040428
  Transmission Date: 20050107
  Serious: Yes (Other)
  Sender: FDA-Public Use
  Company Number: 200410944DE

PATIENT
  Age: 69 Year
  Sex: 0

DRUGS (1)
  1. TAXOTERE [Suspect]
     Indication: NON-SMALL CELL LUNG CANCER
     Route: 042
     Dates: start: 20040405, end: 20040405

REACTIONS (3)
  - OPTIC ATROPHY [None]
  - VASCULAR OCCLUSION [None]
  - VISUAL DISTURBANCE [None]
